FAERS Safety Report 8334426-0 (Version None)
Quarter: 2012Q2

REPORT INFORMATION
  Report Type: 
  Country: None (occurrence: None)
  Receive Date: 20120503
  Receipt Date: 20110901
  Transmission Date: 20120825
  Serious: No
  Sender: FDA-Public Use
  Company Number: US-BAUSCH-2011BL005943

PATIENT
  Age: 5 Year
  Sex: Male

DRUGS (1)
  1. LOTEMAX [Suspect]
     Indication: PUNCTATE KERATITIS
     Route: 047
     Dates: start: 20100101, end: 20110801

REACTIONS (1)
  - PSYCHOMOTOR HYPERACTIVITY [None]
